FAERS Safety Report 6112180-0 (Version None)
Quarter: 2009Q1

REPORT INFORMATION
  Report Type: 
  Country: None (occurrence: None)
  Receive Date: 20090310
  Receipt Date: 20090302
  Transmission Date: 20090719
  Serious: No
  Sender: FDA-Public Use
  Company Number: TRP_05921_2008

PATIENT
  Sex: Female

DRUGS (2)
  1. RIBASPHERE [Suspect]
     Indication: HEPATITIS C
     Dosage: (800 MG)
     Dates: start: 20080319
  2. PEGASYS [Suspect]
     Indication: HEPATITIS C
     Dosage: (180 ?G)
     Dates: start: 20080319

REACTIONS (10)
  - AMNESIA [None]
  - COUGH [None]
  - DISEASE RECURRENCE [None]
  - DRY SKIN [None]
  - FATIGUE [None]
  - ORAL CANDIDIASIS [None]
  - PLATELET COUNT DECREASED [None]
  - PRURITUS [None]
  - WEIGHT DECREASED [None]
  - WHITE BLOOD CELL COUNT DECREASED [None]
